FAERS Safety Report 23597536 (Version 1)
Quarter: 2024Q1

REPORT INFORMATION
  Report Type: Spontaneous
  Country: IT (occurrence: IT)
  Receive Date: 20240305
  Receipt Date: 20240305
  Transmission Date: 20240410
  Serious: Yes (Other)
  Sender: FDA-Public Use
  Company Number: None

PATIENT
  Age: 78 Year
  Sex: Male
  Weight: 64 kg

DRUGS (7)
  1. IRINOTECAN HYDROCHLORIDE [Suspect]
     Active Substance: IRINOTECAN HYDROCHLORIDE
     Indication: Colon cancer stage IV
     Dosage: 240 MG, THERAPY EVERY 14 DAYS
     Route: 042
     Dates: start: 20231115
  2. IRINOTECAN HYDROCHLORIDE [Suspect]
     Active Substance: IRINOTECAN HYDROCHLORIDE
     Dosage: 240 MG, THERAPY EVERY 14 DAYS - V CYCLE
     Route: 042
     Dates: start: 20240111, end: 20240111
  3. AFLIBERCEPT [Suspect]
     Active Substance: AFLIBERCEPT
     Indication: Colon cancer stage IV
     Dosage: 250 MG, THERAPY EVERY 14 DAYS
     Route: 042
     Dates: start: 20231115
  4. AFLIBERCEPT [Suspect]
     Active Substance: AFLIBERCEPT
     Dosage: 250 MG, THERAPY EVERY 14 DAYS - V CYCLE
     Route: 042
     Dates: start: 20240111, end: 20240111
  5. FLUOROURACIL [Suspect]
     Active Substance: FLUOROURACIL
     Indication: Colon cancer stage IV
     Dosage: 500 MG, THERAPY EVERY 14 DAYS - BOLUS INFUSION. DRUG ALSO ADMINISTERED IN CONTINUOUS INFUSION FOR 46
     Route: 042
     Dates: start: 20231115
  6. FLUOROURACIL [Suspect]
     Active Substance: FLUOROURACIL
     Dosage: 500 MG,  THERAPY EVERY 14 DAYS - 5TH CYCLE - BOLUS INFUSION. DRUG ALSO ADMINISTERED IN CONTINUOUS IN
     Route: 042
     Dates: start: 20240111, end: 20240111
  7. LEVOLEUCOVORIN [Concomitant]
     Active Substance: LEVOLEUCOVORIN
     Dosage: 500 MG

REACTIONS (1)
  - Azotaemia [Recovering/Resolving]

NARRATIVE: CASE EVENT DATE: 20240122
